FAERS Safety Report 9072575 (Version 1)
Quarter: 2013Q1

REPORT INFORMATION
  Report Type: Report from Study
  Country: US (occurrence: US)
  Receive Date: 20130129
  Receipt Date: 20130129
  Transmission Date: 20140127
  Serious: No
  Sender: FDA-Public Use
  Company Number: US-ABBOTT-12P-163-0923620-00

PATIENT
  Age: 63 Year
  Sex: Female

DRUGS (26)
  1. HUMIRA 40 MG/0.8 ML PEN [Suspect]
     Indication: PSORIATIC ARTHROPATHY
     Dosage: LOADING DOSE
     Dates: start: 20120405
  2. ARMOUR THYROID [Concomitant]
     Indication: HYPOTHYROIDISM
  3. NUVIGIL [Concomitant]
     Indication: ASTHENIA
  4. BIOTIN (HERBAL) [Concomitant]
     Indication: PRODUCT USED FOR UNKNOWN INDICATION
  5. PULMICORT FLEXHALER [Concomitant]
     Indication: ASTHMA
  6. WELLBUTRIN (GENERIC) [Concomitant]
     Indication: DEPRESSION
  7. VITAMIN D3 [Concomitant]
     Indication: PRODUCT USED FOR UNKNOWN INDICATION
  8. COENZYME Q10 [Concomitant]
     Indication: PRODUCT USED FOR UNKNOWN INDICATION
  9. FOLIC ACID [Concomitant]
     Indication: PRODUCT USED FOR UNKNOWN INDICATION
  10. AMITIZA [Concomitant]
     Indication: CONSTIPATION
     Dosage: IN THE MORNING
  11. AMITIZA [Concomitant]
     Dosage: AT BEDTIME
  12. MAGNESIUM [Concomitant]
     Indication: PRODUCT USED FOR UNKNOWN INDICATION
  13. MILK OF MAGNESIUM [Concomitant]
     Indication: PRODUCT USED FOR UNKNOWN INDICATION
  14. MICARDIS [Concomitant]
     Indication: PRODUCT USED FOR UNKNOWN INDICATION
  15. NASONEX [Concomitant]
     Indication: RHINITIS SEASONAL
     Dosage: 1 TO 2 PUFFS DAILY
  16. PHENTERMINE [Concomitant]
     Indication: WEIGHT DECREASED
  17. PHENTERMINE [Concomitant]
     Indication: ASTHENIA
  18. TRAMADOL [Concomitant]
     Indication: PAIN
  19. BIOTENE ORAL BALANCE [Concomitant]
     Indication: DRY MOUTH
     Route: 048
  20. PROBIOTIC [Concomitant]
     Indication: PRODUCT USED FOR UNKNOWN INDICATION
  21. FOOD ENZYMES [Concomitant]
     Indication: DYSPEPSIA
  22. CALCIUM [Concomitant]
     Indication: PRODUCT USED FOR UNKNOWN INDICATION
  23. EFFEXOR (GENERIC) [Concomitant]
     Indication: DEPRESSION
  24. ZINC [Concomitant]
     Indication: PRODUCT USED FOR UNKNOWN INDICATION
  25. AMBIEN (GENERIC) [Concomitant]
     Indication: INSOMNIA
     Dosage: AT BEDTIME
  26. EPIPEN [Concomitant]
     Indication: HYPERSENSITIVITY

REACTIONS (5)
  - Fatigue [Not Recovered/Not Resolved]
  - Fatigue [Not Recovered/Not Resolved]
  - Contusion [Not Recovered/Not Resolved]
  - Nasal congestion [Not Recovered/Not Resolved]
  - Headache [Not Recovered/Not Resolved]
